FAERS Safety Report 25024892 (Version 1)
Quarter: 2025Q1

REPORT INFORMATION
  Report Type: Spontaneous
  Country: RS (occurrence: RS)
  Receive Date: 20250228
  Receipt Date: 20250228
  Transmission Date: 20250409
  Serious: Yes (Other)
  Sender: MEITHEAL PHARMACEUTICALS
  Company Number: RS-MEITHEAL-2025MPLIT00066

PATIENT
  Age: 27 Year
  Sex: Male

DRUGS (1)
  1. METHYLPREDNISOLONE [Suspect]
     Active Substance: METHYLPREDNISOLONE
     Indication: Optic neuropathy
     Dosage: FOR 5 DAYS
     Route: 042

REACTIONS (1)
  - Central serous chorioretinopathy [Recovered/Resolved]
